FAERS Safety Report 7205744-4 (Version None)
Quarter: 2010Q4

REPORT INFORMATION
  Report Type: 
  Country: None (occurrence: None)
  Receive Date: 20101231
  Receipt Date: 20101228
  Transmission Date: 20110411
  Serious: Yes (Other)
  Sender: FDA-Public Use
  Company Number: US-US-EMD SERONO, INC.-7033472

PATIENT
  Sex: Male

DRUGS (2)
  1. REBIF [Suspect]
     Indication: PRODUCT USED FOR UNKNOWN INDICATION
     Dates: start: 20051221, end: 20101201
  2. TEGRETOL [Concomitant]
     Indication: CONVULSION

REACTIONS (1)
  - GRAND MAL CONVULSION [None]
